FAERS Safety Report 14870477 (Version 1)
Quarter: 2018Q2

REPORT INFORMATION
  Report Type: Other
  Country: DE (occurrence: DE)
  Receive Date: 20180509
  Receipt Date: 20180509
  Transmission Date: 20180711
  Serious: Yes (Other)
  Sender: FDA-Public Use
  Company Number: DE-LUPIN PHARMACEUTICALS INC.-2018-03433

PATIENT
  Sex: Female

DRUGS (9)
  1. L-THYROXIN                         /00068001/ [Interacting]
     Active Substance: LEVOTHYROXINE
     Indication: THYROID OPERATION
     Dosage: UNK
     Route: 065
     Dates: start: 1999
  2. DEKRISTOL [Interacting]
     Active Substance: CHOLECALCIFEROL
     Indication: NONINFECTIVE ENCEPHALITIS
     Dosage: UNK
     Route: 065
     Dates: start: 201712
  3. MAGNESIUM [Interacting]
     Active Substance: MAGNESIUM
     Indication: NONINFECTIVE ENCEPHALITIS
     Dosage: UNK
     Route: 065
     Dates: start: 201712
  4. MAXIM                              /01257001/ [Interacting]
     Active Substance: DIENOGEST\ETHINYL ESTRADIOL
     Indication: PRODUCT USED FOR UNKNOWN INDICATION
     Dosage: UNK
     Route: 048
     Dates: start: 2012
  5. RANITIDIN [Interacting]
     Active Substance: RANITIDINE HYDROCHLORIDE
     Indication: NONINFECTIVE ENCEPHALITIS
     Dosage: UNK
     Route: 065
     Dates: start: 201712
  6. FOLIC ACID. [Interacting]
     Active Substance: FOLIC ACID
     Indication: NONINFECTIVE ENCEPHALITIS
     Dosage: UNK
     Route: 065
     Dates: start: 201712
  7. METHOTREXATE (METHOTREXATE SODIUM) [Interacting]
     Active Substance: METHOTREXATE SODIUM
     Indication: NONINFECTIVE ENCEPHALITIS
     Dosage: UNK
     Route: 065
     Dates: start: 201712
  8. PREDNISOLON                        /00016201/ [Interacting]
     Active Substance: PREDNISOLONE
     Indication: NONINFECTIVE ENCEPHALITIS
     Dosage: UNK
     Route: 065
     Dates: start: 201712
  9. LEVETIRACETAM. [Suspect]
     Active Substance: LEVETIRACETAM
     Indication: EPILEPSY
     Dosage: UNK
     Route: 065
     Dates: start: 201803

REACTIONS (3)
  - Drug interaction [Unknown]
  - Epilepsy [Unknown]
  - Noninfective encephalitis [Unknown]

NARRATIVE: CASE EVENT DATE: 201712
